FAERS Safety Report 6407085-1 (Version None)
Quarter: 2009Q4

REPORT INFORMATION
  Report Type: 
  Country: None (occurrence: None)
  Receive Date: 20091015
  Receipt Date: 20091005
  Transmission Date: 20100525
  Serious: Yes (Hospitalization)
  Sender: FDA-Public Use
  Company Number: CAP09000273

PATIENT
  Age: 88 Year
  Sex: Female

DRUGS (3)
  1. DIDROCAL (ETIDRONATE DISODIUM/CALCIUM CARBONATE CYCLICAL) TABLET [Suspect]
     Indication: OSTEOPOROSIS
     Dosage: ORAL
     Route: 048
     Dates: start: 19980101
  2. ATENOLOL [Concomitant]
  3. ONE-A-DAY (MINERALS NOS, VITAMINS NOS) [Concomitant]

REACTIONS (4)
  - COLON CANCER [None]
  - DIARRHOEA [None]
  - GASTRIC ULCER [None]
  - POSTOPERATIVE HERNIA [None]
